FAERS Safety Report 8588969-5 (Version None)
Quarter: 2012Q3

REPORT INFORMATION
  Report Type: 
  Country: None (occurrence: None)
  Receive Date: 20120731
  Receipt Date: 20120716
  Transmission Date: 20120928
  Serious: No
  Sender: FDA-Public Use
  Company Number: B0818387A

PATIENT
  Age: 53 Year
  Sex: Male

DRUGS (3)
  1. ACYCLOVIR [Suspect]
     Indication: HERPES OPHTHALMIC
     Dosage: ORAL
     Route: 048
  2. METHYLPREDNISOLONE [Concomitant]
  3. ACYCLOVIR [Suspect]
     Indication: HERPES OPHTHALMIC
     Dosage: INTRAVENOUS
     Route: 042

REACTIONS (3)
  - ACUTE GENERALISED EXANTHEMATOUS PUSTULOSIS [None]
  - NEUTROPHILIA [None]
  - LEUKOCYTOSIS [None]
